FAERS Safety Report 6121099-0 (Version None)
Quarter: 2009Q1

REPORT INFORMATION
  Report Type: 
  Country: None (occurrence: None)
  Receive Date: 20090312
  Receipt Date: 20090227
  Transmission Date: 20090719
  Serious: Yes (Hospitalization)
  Sender: FDA-Public Use
  Company Number: PAR_02870_2009

PATIENT
  Age: 63 Year
  Sex: Male
  Weight: 80 kg

DRUGS (6)
  1. IBUPROFEN [Suspect]
     Indication: BONE PAIN
     Dosage: 600 MG ORAL
     Route: 048
     Dates: start: 20081114, end: 20081121
  2. IBUPROFEN [Suspect]
     Indication: HEADACHE
     Dosage: 600 MG ORAL
     Route: 048
     Dates: start: 20081114, end: 20081121
  3. IBUPROFEN [Suspect]
     Indication: BONE PAIN
     Dosage: 800 MG PRN ORAL
     Route: 048
     Dates: start: 20081027, end: 20081113
  4. IBUPROFEN [Suspect]
     Indication: HEADACHE
     Dosage: 800 MG PRN ORAL
     Route: 048
     Dates: start: 20081027, end: 20081113
  5. GLIBENCLAMIDE [Concomitant]
  6. BISOPROLOL FUMARATE [Concomitant]

REACTIONS (9)
  - BLOOD CREATININE DECREASED [None]
  - COLONIC POLYP [None]
  - EROSIVE DUODENITIS [None]
  - HAEMORRHOIDS [None]
  - HELICOBACTER GASTRITIS [None]
  - HIATUS HERNIA [None]
  - NAUSEA [None]
  - REFLUX OESOPHAGITIS [None]
  - VOMITING [None]
